FAERS Safety Report 25025277 (Version 2)
Quarter: 2025Q2

REPORT INFORMATION
  Report Type: Spontaneous
  Country: JP (occurrence: JP)
  Receive Date: 20250228
  Receipt Date: 20250424
  Transmission Date: 20250717
  Serious: Yes (Death)
  Sender: ROCHE
  Company Number: JP-CHUGAI-2025005990

PATIENT
  Age: 8 Decade
  Sex: Male
  Weight: 62 kg

DRUGS (6)
  1. TECENTRIQ [Suspect]
     Active Substance: ATEZOLIZUMAB
     Indication: Hepatocellular carcinoma
     Dosage: 1200 MILLIGRAM, ONCE/3WEEKS
     Route: 042
     Dates: start: 20250122, end: 20250122
  2. AVASTIN [Suspect]
     Active Substance: BEVACIZUMAB
     Indication: Hepatocellular carcinoma
     Dosage: 15 MILLIGRAM, ONCE/3WEEKS
     Route: 042
     Dates: start: 20250122, end: 20250122
  3. DOMPERIDONE [Concomitant]
     Active Substance: DOMPERIDONE
     Dates: start: 20250202, end: 20250219
  4. CEPHALEXIN [Concomitant]
     Active Substance: CEPHALEXIN
     Dates: start: 20250129, end: 20250202
  5. IPRAGLIFLOZIN L-PROLINE\SITAGLIPTIN PHOSPHATE [Concomitant]
     Active Substance: IPRAGLIFLOZIN L-PROLINE\SITAGLIPTIN PHOSPHATE
  6. METFORMIN HYDROCHLORIDE [Concomitant]
     Active Substance: METFORMIN HYDROCHLORIDE

REACTIONS (2)
  - Immune-mediated myocarditis [Fatal]
  - Decreased appetite [Unknown]

NARRATIVE: CASE EVENT DATE: 20250212
